FAERS Safety Report 4469469-0 (Version None)
Quarter: 2004Q4

REPORT INFORMATION
  Report Type: 
  Country: None (occurrence: None)
  Receive Date: 20041005
  Receipt Date: 20040922
  Transmission Date: 20050328
  Serious: Yes (Other)
  Sender: FDA-Public Use
  Company Number: 2004069208

PATIENT
  Sex: Female

DRUGS (6)
  1. ZOLOFT [Suspect]
     Indication: ILL-DEFINED DISORDER
  2. URSODEOXYCHOLIC ACID (URSODEOXYCHOLIC ACID) [Concomitant]
  3. FLUTICASONE PROPIONATE [Concomitant]
  4. GLUCOSAMINE (GLUCOSAMINE) [Concomitant]
  5. CHONDROITIN SULFATE (CHONDROITIN SULFATE) [Concomitant]
  6. ASCORBIC ACID [Concomitant]

REACTIONS (1)
  - BLEEDING TIME PROLONGED [None]
